FAERS Safety Report 9283574 (Version 2)
Quarter: 2013Q2

REPORT INFORMATION
  Report Type: Spontaneous
  Country: AT (occurrence: AT)
  Receive Date: 20130510
  Receipt Date: 20130516
  Transmission Date: 20140414
  Serious: Yes (Hospitalization, Other)
  Sender: FDA-Public Use
  Company Number: AT-009507513-1305AUT003263

PATIENT
  Sex: Female

DRUGS (3)
  1. INEGY [Suspect]
     Dosage: UNK
     Route: 048
  2. ANTIMICROBIAL (UNSPECIFIED) [Concomitant]
  3. PANTOPRAZOLE [Concomitant]

REACTIONS (3)
  - Helicobacter infection [Recovered/Resolved]
  - Bone cancer [Unknown]
  - Blood electrolytes abnormal [Unknown]
